FAERS Safety Report 5831040-3 (Version None)
Quarter: 2008Q3

REPORT INFORMATION
  Report Type: 
  Country: None (occurrence: None)
  Receive Date: 20080801
  Receipt Date: 20080314
  Transmission Date: 20090109
  Serious: No
  Sender: FDA-Public Use
  Company Number: US-BRISTOL-MYERS SQUIBB COMPANY-14116180

PATIENT
  Age: 66 Year
  Sex: Female

DRUGS (4)
  1. COUMADIN [Suspect]
     Indication: CARDIAC PACEMAKER INSERTION
     Route: 048
     Dates: start: 20050101
  2. SYMLIN [Suspect]
     Indication: TYPE 2 DIABETES MELLITUS
     Dosage: SYMLIN INJECTION 0.6MG/ML
     Route: 058
     Dates: start: 20060101
  3. METFORMIN HCL [Concomitant]
  4. LANTUS [Concomitant]

REACTIONS (2)
  - CONTUSION [None]
  - INJECTION SITE PAIN [None]
